FAERS Safety Report 8585554-6 (Version None)
Quarter: 2012Q3

REPORT INFORMATION
  Report Type: 
  Country: None (occurrence: None)
  Receive Date: 20120810
  Receipt Date: 20120802
  Transmission Date: 20120928
  Serious: Yes (Other)
  Sender: FDA-Public Use
  Company Number: CA-JNJFOC-20120801796

PATIENT
  Sex: Female
  Weight: 67 kg

DRUGS (3)
  1. BENADRYL [Concomitant]
     Route: 048
  2. REMICADE [Suspect]
     Indication: CROHN'S DISEASE
     Route: 042
     Dates: start: 20100101
  3. ACETAMINOPHEN [Concomitant]
     Route: 048

REACTIONS (2)
  - HYPOAESTHESIA [None]
  - TREMOR [None]
